FAERS Safety Report 11619575 (Version 1)
Quarter: 2015Q4

REPORT INFORMATION
  Report Type: Spontaneous
  Country: US (occurrence: US)
  Receive Date: 20151012
  Receipt Date: 20151012
  Transmission Date: 20160304
  Serious: No
  Sender: FDA-Public Use
  Company Number: US-TORRENT-00001003

PATIENT
  Sex: Female

DRUGS (2)
  1. LOSARTAN POTASSIUM (50 MG) + HCTZ (12.5 MG) [Suspect]
     Active Substance: HYDROCHLOROTHIAZIDE\LOSARTAN POTASSIUM
     Indication: PRODUCT USED FOR UNKNOWN INDICATION
     Dosage: LOSARTAN POTASSIUM 50MG AND HCTZ 12.5MG
     Dates: start: 201507, end: 20150911
  2. CHILDREN^S FLINTSTONES CHEWABLE VITAMINS WITH IRON [Concomitant]

REACTIONS (1)
  - Cough [Unknown]
